FAERS Safety Report 5507571-2 (Version None)
Quarter: 2007Q4

REPORT INFORMATION
  Report Type: 
  Country: None (occurrence: None)
  Receive Date: 20071106
  Receipt Date: 20071026
  Transmission Date: 20080405
  Serious: Yes (Hospitalization)
  Sender: FDA-Public Use
  Company Number: NO-JNJFOC-20070902863

PATIENT
  Sex: Male

DRUGS (4)
  1. REMICADE [Suspect]
     Route: 042
  2. REMICADE [Suspect]
     Indication: ANKYLOSING SPONDYLITIS
     Route: 042
  3. IBUPROFEN [Concomitant]
     Indication: ANKYLOSING SPONDYLITIS
     Route: 048
  4. ACETAMINOPHEN [Concomitant]
     Indication: ANKYLOSING SPONDYLITIS
     Dosage: 1-4 TIMES DAILY
     Route: 048

REACTIONS (5)
  - ABASIA [None]
  - ASTHENIA [None]
  - CHILLS [None]
  - FATIGUE [None]
  - SLEEP DISORDER [None]
